FAERS Safety Report 8295706-0 (Version None)
Quarter: 2012Q2

REPORT INFORMATION
  Report Type: 
  Country: None (occurrence: None)
  Receive Date: 20120416
  Receipt Date: 20120416
  Transmission Date: 20120825
  Serious: Yes (Other)
  Sender: FDA-Public Use
  Company Number: None

PATIENT
  Sex: Male
  Weight: 44.4525 kg

DRUGS (1)
  1. TAMIFLU [Suspect]
     Indication: INFLUENZA A VIRUS TEST POSITIVE
     Dosage: 75MG BID PO
     Route: 048
     Dates: start: 20120314, end: 20120319

REACTIONS (1)
  - HALLUCINATION, AUDITORY [None]
